FAERS Safety Report 20208237 (Version 2)
Quarter: 2022Q1

REPORT INFORMATION
  Report Type: Spontaneous
  Country: DE (occurrence: DE)
  Receive Date: 20211220
  Receipt Date: 20220203
  Transmission Date: 20220423
  Serious: Yes (Hospitalization)
  Sender: FDA-Public Use
  Company Number: DE-CELGENE-DEU-20211204031

PATIENT
  Age: 81 Year
  Sex: Male

DRUGS (24)
  1. AZACITIDINE [Suspect]
     Active Substance: AZACITIDINE
     Indication: Myelodysplastic syndrome
     Dosage: 36 MILLIGRAM/SQ. METER
     Route: 058
     Dates: start: 20201214
  2. VENETOCLAX [Suspect]
     Active Substance: VENETOCLAX
     Indication: Myelodysplastic syndrome
     Dosage: 50 MILLIGRAM
     Route: 048
     Dates: start: 20211214
  3. Prostagut [Concomitant]
     Indication: Benign prostatic hyperplasia
     Dosage: 160 MILLIGRAM
     Route: 048
     Dates: start: 20101215
  4. VITAMIN D [Concomitant]
     Active Substance: VITAMIN D NOS
     Indication: Vitamin supplementation
     Route: 048
     Dates: start: 20200813
  5. LUTEIN [Concomitant]
     Active Substance: LUTEIN
     Indication: Dry eye
     Dosage: 10 MILLIGRAM
     Route: 048
  6. PANTOPRAZOLE SODIUM [Concomitant]
     Active Substance: PANTOPRAZOLE SODIUM
     Indication: Gastritis
     Dosage: 80 MILLIGRAM
     Route: 048
     Dates: start: 20210121
  7. PANTOPRAZOLE SODIUM [Concomitant]
     Active Substance: PANTOPRAZOLE SODIUM
     Dosage: 80 MILLIGRAM
     Route: 048
     Dates: start: 20210703
  8. MAGALDRATE [Concomitant]
     Active Substance: MAGALDRATE
     Indication: Gastritis
     Route: 048
     Dates: start: 20210121
  9. LACTOBACILLUS ACIDOPHILUS [Concomitant]
     Active Substance: LACTOBACILLUS ACIDOPHILUS
     Indication: Supplementation therapy
     Route: 048
     Dates: start: 20201230
  10. granisetron beta [Concomitant]
     Indication: Prophylaxis of nausea and vomiting
     Route: 048
     Dates: start: 20201214
  11. SYSTANE (HYPROMELLOSE 2910 (4000 MPA.S)) [Concomitant]
     Active Substance: HYPROMELLOSE 2910 (4000 MPA.S)
     Indication: Dry eye
     Route: 047
     Dates: start: 20200502
  12. TORSEMIDE [Concomitant]
     Active Substance: TORSEMIDE
     Indication: Haematoma
     Dosage: 5 MILLIGRAM
     Route: 048
     Dates: start: 20210301
  13. TORSEMIDE [Concomitant]
     Active Substance: TORSEMIDE
     Dosage: 10 MILLIGRAM
     Route: 048
     Dates: start: 20210412
  14. POTASSIUM CHLORIDE [Concomitant]
     Active Substance: POTASSIUM CHLORIDE
     Indication: Hypokalaemia
     Dosage: 600 MILLIGRAM
     Route: 048
     Dates: start: 20210301
  15. POTASSIUM CHLORIDE [Concomitant]
     Active Substance: POTASSIUM CHLORIDE
     Dosage: 600 MILLIGRAM
     Route: 048
     Dates: start: 20210410
  16. ASPIRIN [Concomitant]
     Active Substance: ASPIRIN
     Indication: Coronary artery disease
     Dosage: 100 MILLIGRAM
     Route: 048
     Dates: start: 20210411
  17. CEFUROXIME [Concomitant]
     Active Substance: CEFUROXIME
     Indication: Infection prophylaxis
     Dosage: 1000 MILLIGRAM
     Route: 048
     Dates: start: 20210329
  18. NOXAFIL [Concomitant]
     Active Substance: POSACONAZOLE
     Indication: Neutropenic sepsis
     Dosage: 300MG/250ML/H
     Route: 041
     Dates: start: 20210407
  19. ELECTROLYTES NOS\MINERALS [Concomitant]
     Active Substance: ELECTROLYTES NOS\MINERALS
     Indication: Neutropenic sepsis
     Dosage: 300ML/HR
     Route: 041
     Dates: start: 20210407
  20. POSACONAZOLE [Concomitant]
     Active Substance: POSACONAZOLE
     Indication: Neutropenic sepsis
     Dosage: 300 MILLIGRAM
     Route: 041
     Dates: start: 20210409
  21. TAMSULOSIN [Concomitant]
     Active Substance: TAMSULOSIN
     Indication: Benign prostatic hyperplasia
     Dosage: .4 MILLIGRAM
     Route: 048
     Dates: start: 20210411
  22. TAMSULOSIN [Concomitant]
     Active Substance: TAMSULOSIN
     Dosage: 600 MILLIGRAM
     Route: 048
     Dates: start: 20210410
  23. AMPHOTERICIN B [Concomitant]
     Active Substance: AMPHOTERICIN B
     Indication: Mucosal infection
     Dosage: 40 MILLIGRAM
     Route: 048
     Dates: start: 20210415
  24. AMPHOTERICIN B [Concomitant]
     Active Substance: AMPHOTERICIN B
     Dosage: 600 MILLIGRAM
     Route: 048
     Dates: start: 20210410

REACTIONS (1)
  - Mastoiditis [Recovered/Resolved]

NARRATIVE: CASE EVENT DATE: 20211202
